FAERS Safety Report 23565076 (Version 3)
Quarter: 2024Q2

REPORT INFORMATION
  Report Type: Spontaneous
  Country: FI (occurrence: FI)
  Receive Date: 20240226
  Receipt Date: 20240604
  Transmission Date: 20240715
  Serious: Yes (Life-Threatening, Hospitalization, Other)
  Sender: FDA-Public Use
  Company Number: FI-Accord-403867

PATIENT
  Age: 70 Year
  Sex: Female
  Weight: 96 kg

DRUGS (52)
  1. ETOPOSIDE [Suspect]
     Active Substance: ETOPOSIDE
     Indication: Diffuse large B-cell lymphoma stage II
     Dosage: CYCLE 2?FORM OF ADMIN: INFUSION
     Dates: start: 20240102, end: 20240104
  2. ETOPOSIDE [Suspect]
     Active Substance: ETOPOSIDE
     Dosage: CYCLE 3?FORM OF ADMIN: INFUSION
     Dates: start: 20240123, end: 20240125
  3. ETOPOSIDE [Suspect]
     Active Substance: ETOPOSIDE
     Dosage: CYCLE 1?FORM OF ADMIN: INFUSION
     Dates: start: 20231212, end: 20231214
  4. CARBOPLATIN [Suspect]
     Active Substance: CARBOPLATIN
     Indication: Diffuse large B-cell lymphoma stage II
     Dosage: 5 AUC, CYCLE 1 - ONWARDS?DOSAGE FORM: INFUSION
     Dates: start: 20231213
  5. RITUXIMAB [Suspect]
     Active Substance: RITUXIMAB
     Indication: Diffuse large B-cell lymphoma stage II
     Dosage: CYCLE 1 - ONWARDS?DOSAGE FORM: CONCENTRATE FOR SOLUTION FOR INFUSION
     Dates: start: 20231212
  6. IFOSFAMIDE [Suspect]
     Active Substance: IFOSFAMIDE
     Indication: Diffuse large B-cell lymphoma stage II
     Dosage: CYCLE 2?DOSAGE FORM: INFUSION
     Dates: start: 20240103, end: 20240104
  7. IFOSFAMIDE [Suspect]
     Active Substance: IFOSFAMIDE
     Dosage: CYCLE 3?DOSAGE FORM: INFUSION
     Dates: start: 20240124, end: 20240125
  8. IFOSFAMIDE [Suspect]
     Active Substance: IFOSFAMIDE
     Dosage: CYCLE 1?DOSAGE FORM: INFUSION
     Dates: start: 20231213, end: 20231214
  9. PRIMPERAN [Concomitant]
     Active Substance: METOCLOPRAMIDE HYDROCHLORIDE
     Indication: Product used for unknown indication
     Dates: start: 20230925
  10. FUROSEMIDE [Concomitant]
     Active Substance: FUROSEMIDE
     Indication: Product used for unknown indication
     Dates: start: 20231212
  11. DIFLUCAN [Concomitant]
     Active Substance: FLUCONAZOLE
     Indication: Product used for unknown indication
     Dates: start: 20231222
  12. DEXAMETHASONE [Concomitant]
     Active Substance: DEXAMETHASONE
     Indication: Prophylaxis
     Dosage: 20 MG?DOSAGE FORM: ORAL USE
     Dates: start: 20240103, end: 20240103
  13. DEXAMETHASONE [Concomitant]
     Active Substance: DEXAMETHASONE
     Indication: Prophylaxis
     Dosage: 7.5 MG?DOSAGE FORM: ORAL USE
     Dates: start: 20240102, end: 20240102
  14. DEXAMETHASONE [Concomitant]
     Active Substance: DEXAMETHASONE
     Indication: Product used for unknown indication
     Dates: start: 20231212, end: 20240103
  15. PANTOPRAZOLE SODIUM [Concomitant]
     Active Substance: PANTOPRAZOLE SODIUM
     Indication: Product used for unknown indication
     Dates: start: 20230925
  16. EPCORITAMAB [Concomitant]
     Active Substance: EPCORITAMAB
     Indication: Diffuse large B-cell lymphoma stage II
     Dosage: C1D8?DOSAGE FORM: CONCENTRATE FOR SOLUTION FOR INJECTION?ROA: SUBCUTENOUS
     Dates: start: 20231221, end: 20231221
  17. EPCORITAMAB [Concomitant]
     Active Substance: EPCORITAMAB
     Indication: Diffuse large B-cell lymphoma stage II
     Dosage: C2D1?DOSAGE FORM: CONCENTRATE FOR SOLUTION FOR INJECTION
     Dates: start: 20240104
  18. EPCORITAMAB [Concomitant]
     Active Substance: EPCORITAMAB
     Indication: Diffuse large B-cell lymphoma stage II
     Dosage: 0.16 MG, C1D1 PRIMING DOSE?DOSAGE FORM: CONCENTRATE FOR SOLUTION FOR INJECTION?ROA: SUBCUTENOUS
     Dates: start: 20231214, end: 20231214
  19. EPCORITAMAB [Concomitant]
     Active Substance: EPCORITAMAB
     Indication: Diffuse large B-cell lymphoma stage II
     Dosage: DOSAGE FORM: CONCENTRATE FOR SOLUTION FOR INJECTION
     Dates: start: 20240125
  20. EPCORITAMAB [Concomitant]
     Active Substance: EPCORITAMAB
     Indication: Diffuse large B-cell lymphoma stage II
     Dosage: 48 MG, C1D15 FULL DOSE?DOSAGE FORM: CONCENTRATE FOR SOLUTION FOR INJECTION?ROA: SUBCUTENOUS
     Dates: start: 20231228
  21. ALOXI [Concomitant]
     Active Substance: PALONOSETRON HYDROCHLORIDE
     Dates: start: 20240125, end: 20240125
  22. ALOXI [Concomitant]
     Active Substance: PALONOSETRON HYDROCHLORIDE
     Indication: Product used for unknown indication
  23. HICET [Concomitant]
     Indication: Premedication
     Dosage: 10 MG?ROA: ORAL
     Dates: start: 20240111, end: 20240111
  24. HICET [Concomitant]
     Indication: Premedication
     Dosage: 10 MG?ROA: ORAL
     Dates: start: 20240104, end: 20240104
  25. HICET [Concomitant]
     Indication: Premedication
     Dosage: 10 MG?ROA: ORAL
     Dates: start: 20240118, end: 20240118
  26. PEGFILGRASTIM [Concomitant]
     Active Substance: PEGFILGRASTIM
     Indication: Product used for unknown indication
     Dates: start: 20230929
  27. POLYETHYLENE GLYCOL 4000 [Concomitant]
     Active Substance: POLYETHYLENE GLYCOL 4000
     Indication: Product used for unknown indication
     Dates: start: 20230929
  28. SODIUM CHLORIDE [Concomitant]
     Active Substance: SODIUM CHLORIDE
     Indication: Product used for unknown indication
     Dates: start: 20240102, end: 20240104
  29. PANADOL [Concomitant]
     Active Substance: ACETAMINOPHEN
     Indication: Product used for unknown indication
     Dates: start: 20230929
  30. CEPHALEXIN [Concomitant]
     Active Substance: CEPHALEXIN
     Indication: Product used for unknown indication
     Dates: start: 20231231, end: 20240104
  31. PREDNISOLONE [Concomitant]
     Active Substance: PREDNISOLONE
     Indication: Prophylaxis
     Dosage: 100 MG?ROA: ORAL
     Dates: start: 20240104, end: 20240107
  32. PREDNISOLONE [Concomitant]
     Active Substance: PREDNISOLONE
     Dosage: 100 MG?ROA: ORAL
     Dates: start: 20231228, end: 20231231
  33. PREDNISOLONE [Concomitant]
     Active Substance: PREDNISOLONE
     Dosage: 100 MG?ROA: ORAL
     Dates: start: 20231221, end: 20231224
  34. ARANESP [Concomitant]
     Active Substance: DARBEPOETIN ALFA
     Indication: Product used for unknown indication
     Dates: start: 20231222
  35. POTASSIUM CHLORIDE [Concomitant]
     Active Substance: POTASSIUM CHLORIDE
     Indication: Product used for unknown indication
     Dates: start: 20230928
  36. ENOXAPARIN SODIUM [Concomitant]
     Active Substance: ENOXAPARIN SODIUM
     Indication: Product used for unknown indication
     Dates: start: 20230925
  37. ELECTROLYTES NOS [Concomitant]
     Active Substance: ELECTROLYTES NOS
     Indication: Product used for unknown indication
     Dates: start: 20231228, end: 20231229
  38. CEFUROXIME [Concomitant]
     Active Substance: CEFUROXIME
     Indication: Product used for unknown indication
     Dates: start: 20231228, end: 20231231
  39. OXAZEPAM [Concomitant]
     Active Substance: OXAZEPAM
     Indication: Product used for unknown indication
     Dates: start: 20231204
  40. ONDANSETRON [Concomitant]
     Active Substance: ONDANSETRON
     Indication: Product used for unknown indication
     Dates: start: 20230925
  41. ONDANSETRON [Concomitant]
     Active Substance: ONDANSETRON
     Dates: start: 20230923
  42. FUROSEMIDE [Concomitant]
     Active Substance: FUROSEMIDE
     Indication: Product used for unknown indication
     Dates: start: 20230925
  43. HYDROCORTISONE [Concomitant]
     Active Substance: HYDROCORTISONE
     Indication: Product used for unknown indication
     Dates: start: 20231218
  44. HYDROCORTISONE [Concomitant]
     Active Substance: HYDROCORTISONE
     Dates: start: 20240104
  45. ACLOVIR [Concomitant]
     Indication: Product used for unknown indication
     Dates: start: 20240111, end: 20240117
  46. ACETAMINOPHEN [Concomitant]
     Active Substance: ACETAMINOPHEN
     Indication: Premedication
     Dosage: 1 G
     Route: 048
     Dates: start: 20240118, end: 20240118
  47. ACETAMINOPHEN [Concomitant]
     Active Substance: ACETAMINOPHEN
     Indication: Premedication
     Dosage: 1 G
     Route: 048
     Dates: start: 20240104, end: 20240104
  48. ACETAMINOPHEN [Concomitant]
     Active Substance: ACETAMINOPHEN
     Indication: Premedication
     Dosage: 1 G
     Route: 048
     Dates: start: 20240111, end: 20240111
  49. IBUPROFEN [Concomitant]
     Active Substance: IBUPROFEN
     Indication: Product used for unknown indication
     Dates: start: 20231229, end: 20231230
  50. NYSTATIN [Concomitant]
     Active Substance: NYSTATIN
     Indication: Product used for unknown indication
     Dates: start: 20231222
  51. THYROXINE [Concomitant]
     Active Substance: LEVOTHYROXINE
     Indication: Product used for unknown indication
     Dates: start: 20201109
  52. BECLOMET [Concomitant]
     Indication: Product used for unknown indication
     Dates: start: 20201209

REACTIONS (7)
  - Neutropenic infection [Recovered/Resolved]
  - Neutropenia [Unknown]
  - Cytokine release syndrome [Recovered/Resolved]
  - Oral herpes [Unknown]
  - Blister infected [Unknown]
  - Feeling cold [Unknown]
  - Nasal herpes [Unknown]

NARRATIVE: CASE EVENT DATE: 20240111
